FAERS Safety Report 24141659 (Version 1)
Quarter: 2024Q3

REPORT INFORMATION
  Report Type: Spontaneous
  Country: US (occurrence: None)
  Receive Date: 20240726
  Receipt Date: 20240726
  Transmission Date: 20241017
  Serious: Yes (Hospitalization)
  Sender: Public
  Company Number: None

PATIENT
  Age: 9 Year
  Sex: Male
  Weight: 28.4 kg

DRUGS (7)
  1. CALASPARGASE PEGOL-MKNL [Suspect]
     Active Substance: CALASPARGASE PEGOL-MKNL
     Dosage: OTHER QUANTITY : 2475 IU;?
  2. CYTARABINE [Concomitant]
     Active Substance: CYTARABINE
  3. Dexarnethasone [Concomitant]
  4. ETOPOSIDE [Concomitant]
     Active Substance: ETOPOSIDE
  5. METHOTREXATE [Concomitant]
  6. NEULASTA [Concomitant]
     Active Substance: PEGFILGRASTIM
  7. ST1571 [Concomitant]

REACTIONS (6)
  - Seizure [None]
  - Thrombosis [None]
  - Hypertension [None]
  - Status epilepticus [None]
  - Respiratory failure [None]
  - Inflammation [None]

NARRATIVE: CASE EVENT DATE: 20240715
